FAERS Safety Report 8535035-0 (Version None)
Quarter: 2012Q3

REPORT INFORMATION
  Report Type: 
  Country: None (occurrence: None)
  Receive Date: 20120724
  Receipt Date: 20120717
  Transmission Date: 20120928
  Serious: Yes (Other)
  Sender: FDA-Public Use
  Company Number: BR-PFIZER INC-2012173127

PATIENT
  Age: 42 Year
  Sex: Female
  Weight: 69 kg

DRUGS (2)
  1. XALATAN [Suspect]
     Indication: INTRAOCULAR PRESSURE INCREASED
     Dosage: UNK
     Route: 047
  2. XALCOM [Suspect]
     Indication: INTRAOCULAR PRESSURE INCREASED
     Dosage: 3 UG, 2X/DAY
     Route: 047
     Dates: start: 20120403, end: 20120707

REACTIONS (7)
  - VISUAL IMPAIRMENT [None]
  - OFF LABEL USE [None]
  - FEELING ABNORMAL [None]
  - EYE PAIN [None]
  - HEADACHE [None]
  - DIZZINESS [None]
  - VISION BLURRED [None]
